FAERS Safety Report 19436252 (Version 1)
Quarter: 2021Q2

REPORT INFORMATION
  Report Type: Spontaneous
  Country: CN (occurrence: CN)
  Receive Date: 20210618
  Receipt Date: 20210618
  Transmission Date: 20210717
  Serious: Yes (Disabling, Other)
  Sender: FDA-Public Use
  Company Number: CN-009507513-2106CHN003041

PATIENT
  Age: 79 Year
  Sex: Female

DRUGS (1)
  1. TIENAM [Suspect]
     Active Substance: CILASTATIN SODIUM\IMIPENEM
     Indication: INFECTION
     Dosage: 1 G, THREE TIMES A DAY
     Route: 041
     Dates: start: 20210525, end: 20210601

REACTIONS (4)
  - Epilepsy [Recovering/Resolving]
  - Disease recurrence [Unknown]
  - Status epilepticus [Unknown]
  - Brain neoplasm [Unknown]

NARRATIVE: CASE EVENT DATE: 20210526
